FAERS Safety Report 7320459-X (Version None)
Quarter: 2011Q1

REPORT INFORMATION
  Report Type: 
  Country: None (occurrence: None)
  Receive Date: 20110228
  Receipt Date: 20110216
  Transmission Date: 20110831
  Serious: Yes (Hospitalization)
  Sender: FDA-Public Use
  Company Number: B0700257A

PATIENT
  Sex: Male
  Weight: 1.7 kg

DRUGS (3)
  1. VIRAMUNE [Concomitant]
     Dosage: 3.4MG PER DAY
     Route: 065
     Dates: start: 20101109, end: 20101124
  2. RETROVIR [Suspect]
     Dosage: 3.5MG THREE TIMES PER DAY
     Route: 048
     Dates: start: 20101109, end: 20101220
  3. EPIVIR [Suspect]
     Dosage: 3.2MG TWICE PER DAY
     Route: 048
     Dates: start: 20101109, end: 20101220

REACTIONS (2)
  - DRUG LEVEL INCREASED [None]
  - ANAEMIA [None]
